FAERS Safety Report 19046360 (Version 1)
Quarter: 2021Q1

REPORT INFORMATION
  Report Type: Spontaneous
  Country: US (occurrence: US)
  Receive Date: 20210323
  Receipt Date: 20210323
  Transmission Date: 20210420
  Serious: No
  Sender: FDA-Public Use
  Company Number: US-PFIZER INC-2020377796

PATIENT
  Age: 80 Year
  Sex: Male

DRUGS (2)
  1. INLYTA [Suspect]
     Active Substance: AXITINIB
     Dosage: 10 MG, 2X/DAY (1 TAB TWICE A DAY D1?12, Q (EVERY) 21D)
  2. INLYTA [Suspect]
     Active Substance: AXITINIB
     Indication: RENAL CANCER
     Dosage: 5 MG, 2X/DAY (1 TAB TWICE A DAY D1?12, Q (EVERY) 21D)

REACTIONS (1)
  - Diarrhoea [Unknown]
